FAERS Safety Report 9421869 (Version 1)
Quarter: 2013Q3

REPORT INFORMATION
  Report Type: Spontaneous
  Country: US (occurrence: US)
  Receive Date: 20130726
  Receipt Date: 20130726
  Transmission Date: 20140515
  Serious: Yes (Other)
  Sender: FDA-Public Use
  Company Number: US-CELGENEUS-163-21880-13072590

PATIENT
  Age: 74 Year
  Sex: Male
  Weight: 92.62 kg

DRUGS (2)
  1. REVLIMID [Suspect]
     Indication: PLASMA CELL MYELOMA
     Dosage: 15 MILLIGRAM
     Route: 048
     Dates: start: 20130605
  2. VELCADE [Concomitant]
     Indication: CHEMOTHERAPY
     Route: 041

REACTIONS (3)
  - Prostatic specific antigen increased [Not Recovered/Not Resolved]
  - Vertigo [Not Recovered/Not Resolved]
  - Herpes zoster [Not Recovered/Not Resolved]
